FAERS Safety Report 25974400 (Version 1)
Quarter: 2025Q4

REPORT INFORMATION
  Report Type: Spontaneous
  Country: GB (occurrence: GB)
  Receive Date: 20251029
  Receipt Date: 20251029
  Transmission Date: 20260119
  Serious: Yes (Other)
  Sender: GLAXOSMITHKLINE
  Company Number: None

PATIENT
  Age: 60 Year
  Sex: Male

DRUGS (13)
  1. LAMOTRIGINE [Suspect]
     Active Substance: LAMOTRIGINE
     Indication: Product used for unknown indication
     Dosage: 100 MG, BID(LAMOTRIGINE 100 MG TABLETS TAKE ONE TWICE A DAY - Y)
     Route: 065
  2. LEVETIRACETAM [Suspect]
     Active Substance: LEVETIRACETAM
     Indication: Product used for unknown indication
     Dosage: 500 MG, BID(LEVETIRACETAM 500 MG TABLETS ONE TO BE TAKEN TWICE A DAY- AS ADVISED BY NEUROLOGY - Y - INCREASED THIS ADMISSION)
     Route: 065
  3. CALCIUM CARBONATE\SODIUM ALGINATE\SODIUM BICARBONATE [Concomitant]
     Active Substance: CALCIUM CARBONATE\SODIUM ALGINATE\SODIUM BICARBONATE
     Indication: Product used for unknown indication
     Dosage: QID(PEPTAC LIQUID PEPPERMINT 10-20 ML TO BE TAKEN 4X DAY-AFTER MEALS AND AT BEDTIME - Y PRN)
     Route: 065
  4. FAMOTIDINE [Concomitant]
     Active Substance: FAMOTIDINE
     Indication: Product used for unknown indication
     Dosage: 20 MG, QD(FAMOTIDINE 20 MG TABLETS ONE TO BE TAKEN AT NIGHT - Y)
     Route: 065
  5. ATORVASTATIN [Concomitant]
     Active Substance: ATORVASTATIN
     Indication: Product used for unknown indication
     Dosage: 80 MG, QD(ATORVASTATIN 80 MG TABLETS ONE TO BE TAKEN EACH DAY - Y)
     Route: 065
  6. CITALOPRAM [Concomitant]
     Active Substance: CITALOPRAM
     Indication: Product used for unknown indication
     Dosage: 10 MG, QD(CITALOPRAM 10 MG TABLETS ONE TO BE TAKEN EACH DAY - N WIFE STOPPED GIVING THIS DUE TO SODIUM)
     Route: 065
  7. BISOPROLOL [Concomitant]
     Active Substance: BISOPROLOL
     Indication: Product used for unknown indication
     Dosage: 2.5 MG, QD(BISOPROLOL 2.5 MG TABLETS ONE TO BE TAKEN EACH DAY - Y)
     Route: 065
  8. ISOSORBIDE MONONITRATE [Concomitant]
     Active Substance: ISOSORBIDE MONONITRATE
     Indication: Product used for unknown indication
     Dosage: 30 MG, QD (CHEMYDUR 60 XL TABLETS HALF A TABLET ( 30 MG) TO BE TAKEN EACH MORNING Y)
     Route: 065
  9. NITROGLYCERIN [Concomitant]
     Active Substance: NITROGLYCERIN
     Indication: Product used for unknown indication
     Dosage: UNK (GLYCERYL TRINITRATE 400 MICROGRAMS / DOSE PUMP SUBLINGUAL SPRAY SPRAY ONE OR TWO DOSES UNDER TONGUE AND THEN CLOSE MOUTH AS DIRECTED Y)
  10. CARBOMER [Concomitant]
     Active Substance: CARBOMER
     Indication: Product used for unknown indication
     Dosage: QID(CARBOMER ^ 980 ^ 0.2% EYE DROPS APPLY FOUR TIMES A DAY TO THE AFFECTED EYE (S) - N)
     Route: 065
  11. ASPIRIN [Concomitant]
     Active Substance: ASPIRIN
     Indication: Product used for unknown indication
     Dosage: 75 MG, QD(ASPIRIN 75 MG DISPERSIBLE TABLETS ONE TO BE TAKEN EACH DAY - Y)
     Route: 065
  12. ZOLPIDEM [Concomitant]
     Active Substance: ZOLPIDEM TARTRATE
     Indication: Product used for unknown indication
     Dosage: 10 MG, QD(ZOLPIDEM 10 MG TABLETS ONE TABLET, TO BE TAKEN AT NIGHT, TRY TO NOT USE EVERY NIGHT - Y 28-AUG-2025)
     Route: 065
  13. ESCITALOPRAM [Concomitant]
     Active Substance: ESCITALOPRAM OXALATE
     Indication: Product used for unknown indication
     Dosage: UNK
     Route: 065

REACTIONS (1)
  - Suicidal ideation [Unknown]

NARRATIVE: CASE EVENT DATE: 20250924
